FAERS Safety Report 8129216-8 (Version None)
Quarter: 2012Q1

REPORT INFORMATION
  Report Type: 
  Country: None (occurrence: None)
  Receive Date: 20120210
  Receipt Date: 20111118
  Transmission Date: 20120608
  Serious: No
  Sender: FDA-Public Use
  Company Number: US-BRISTOL-MYERS SQUIBB COMPANY-16239469

PATIENT
  Sex: Female

DRUGS (2)
  1. PREDNISONE [Suspect]
  2. ORENCIA [Suspect]
     Indication: RHEUMATOID ARTHRITIS
     Dosage: SECOND INFUSION WAS ON 14NOV2011
     Dates: start: 20111031

REACTIONS (2)
  - MALAISE [None]
  - NASOPHARYNGITIS [None]
